FAERS Safety Report 9705770 (Version 1)
Quarter: 2013Q4

REPORT INFORMATION
  Report Type: Spontaneous
  Country: US (occurrence: US)
  Receive Date: 20131122
  Receipt Date: 20131122
  Transmission Date: 20140711
  Serious: No
  Sender: FDA-Public Use
  Company Number: US-GILEAD-2008-0017952

PATIENT
  Sex: Female

DRUGS (9)
  1. LETAIRIS [Suspect]
     Indication: PULMONARY ARTERIAL HYPERTENSION
     Route: 048
     Dates: start: 20080820
  2. ADVIL [Concomitant]
  3. WARFARIN [Concomitant]
  4. REGLAN [Concomitant]
  5. PREMARIN [Concomitant]
  6. METOPROLOL [Concomitant]
  7. NEXIUM [Concomitant]
  8. NORVASC [Concomitant]
  9. EFFEXOR [Concomitant]

REACTIONS (1)
  - Oedema peripheral [Unknown]
